FAERS Safety Report 14297454 (Version 2)
Quarter: 2017Q4

REPORT INFORMATION
  Report Type: Spontaneous
  Country: GB (occurrence: GB)
  Receive Date: 20171218
  Receipt Date: 20171229
  Transmission Date: 20180321
  Serious: Yes (Other)
  Sender: FDA-Public Use
  Company Number: GB-MYLANLABS-2017M1079565

PATIENT
  Sex: Female

DRUGS (4)
  1. IRBESARTAN. [Suspect]
     Active Substance: IRBESARTAN
     Dosage: UNK
     Route: 065
  2. IRBESARTAN. [Suspect]
     Active Substance: IRBESARTAN
     Indication: HYPERTENSION
     Dosage: IN THE MORNING
     Route: 048
  3. MOTENS [Concomitant]
     Active Substance: LACIDIPINE
     Indication: PRODUCT USED FOR UNKNOWN INDICATION
     Dosage: UNK
     Route: 065
  4. IRBESARTAN. [Suspect]
     Active Substance: IRBESARTAN
     Indication: HYPERTENSION
     Dosage: 300 MG, QD, TOOK 2 TABLETS OF 150MG
     Route: 065

REACTIONS (4)
  - Drug dose omission [Unknown]
  - Heart rate irregular [Unknown]
  - Wrong drug administered [Unknown]
  - Arrhythmia [Unknown]

NARRATIVE: CASE EVENT DATE: 20171113
